FAERS Safety Report 5134798-4 (Version None)
Quarter: 2006Q4

REPORT INFORMATION
  Report Type: 
  Country: None (occurrence: None)
  Receive Date: 20061025
  Receipt Date: 20061017
  Transmission Date: 20070319
  Serious: Yes (Hospitalization)
  Sender: FDA-Public Use
  Company Number: FR-ROCHE-467931

PATIENT
  Age: 15 Year
  Sex: Male
  Weight: 48 kg

DRUGS (2)
  1. ISOTRETINOIN [Suspect]
     Indication: ACNE
     Route: 065
     Dates: start: 20060925
  2. SURGAM [Concomitant]
     Dosage: A WEEK BEFORE THE EVENTS, THE PATIENT HAD TAKEN 1 OR 2 TABLETS.

REACTIONS (3)
  - ANAEMIA [None]
  - FATIGUE [None]
  - GASTRITIS HAEMORRHAGIC [None]
